FAERS Safety Report 4577504-4 (Version None)
Quarter: 2005Q1

REPORT INFORMATION
  Report Type: 
  Country: None (occurrence: None)
  Receive Date: 20050208
  Receipt Date: 20050127
  Transmission Date: 20050727
  Serious: Yes (Hospitalization)
  Sender: FDA-Public Use
  Company Number: MK200502-0007-1

PATIENT
  Age: 76 Year
  Sex: Female

DRUGS (8)
  1. ANAFRANIL CAP [Suspect]
     Dosage: 10 MG, QHS
  2. LUMIGAN [Suspect]
  3. ALPHAGAN [Suspect]
  4. COSOPT [Suspect]
  5. ATENOLOL [Concomitant]
  6. DIAMOX [Concomitant]
  7. LEVAXIN [Concomitant]
  8. SOTALOL HCL [Concomitant]

REACTIONS (6)
  - ARRHYTHMIA [None]
  - ATRIAL FIBRILLATION [None]
  - DRUG INTERACTION [None]
  - DYSPNOEA [None]
  - EXTRASYSTOLES [None]
  - GLAUCOMA [None]
